FAERS Safety Report 21555302 (Version 1)
Quarter: 2022Q4

REPORT INFORMATION
  Report Type: Spontaneous
  Country: CN (occurrence: CN)
  Receive Date: 20221104
  Receipt Date: 20221104
  Transmission Date: 20230112
  Serious: Yes (Other)
  Sender: FDA-Public Use
  Company Number: None

PATIENT
  Age: 39 Year
  Sex: Female
  Weight: 56.2 kg

DRUGS (16)
  1. CYCLOPHOSPHAMIDE [Suspect]
     Active Substance: CYCLOPHOSPHAMIDE
     Indication: Malignant hydatidiform mole
     Dosage: 930 MG, QD, DILUTED WITH 20 ML OF 0.9 % SODIUM CHLORIDE
     Route: 042
     Dates: start: 20221004, end: 20221004
  2. CYCLOPHOSPHAMIDE [Suspect]
     Active Substance: CYCLOPHOSPHAMIDE
     Indication: Chemotherapy
  3. SODIUM CHLORIDE [Suspect]
     Active Substance: SODIUM CHLORIDE
     Indication: Medication dilution
     Dosage: 20 ML, QD, USED TO DILUTE 930 MG CYCLOPHOSPHAMIDE
     Route: 042
     Dates: start: 20221004, end: 20221004
  4. SODIUM CHLORIDE [Suspect]
     Active Substance: SODIUM CHLORIDE
     Dosage: 500 ML, QD, USED TO DILUTE 0.15 G ETOPOSIDE
     Route: 041
     Dates: start: 20220927, end: 20220928
  5. SODIUM CHLORIDE [Suspect]
     Active Substance: SODIUM CHLORIDE
     Dosage: 90 ML, QD, USED TO DILUTE 0.5 MG DACTINOMYCIN
     Route: 042
     Dates: start: 20220927, end: 20220928
  6. SODIUM CHLORIDE [Suspect]
     Active Substance: SODIUM CHLORIDE
     Dosage: 90 ML, QD, USED TO DILUTE 0.15 G OF METHOTREXATE
     Route: 042
     Dates: start: 20220927, end: 20220927
  7. SODIUM CHLORIDE [Suspect]
     Active Substance: SODIUM CHLORIDE
     Dosage: 500 ML, QD, USED TO DILUTE 0.3 G OF METHOTREXATE
     Route: 041
     Dates: start: 20220927, end: 20220927
  8. SODIUM CHLORIDE [Suspect]
     Active Substance: SODIUM CHLORIDE
     Dosage: 20 ML, QD, USED TO DILUTE 1.5 MG OF VINCRISTINE SULFATE
     Route: 042
     Dates: start: 20221004, end: 20221004
  9. ETOPOSIDE [Suspect]
     Active Substance: ETOPOSIDE
     Indication: Malignant hydatidiform mole
     Dosage: 0.15 G, QD, DILUTED WITH 500 ML OF 0.9% SODIUM CHLORIDE
     Route: 041
     Dates: start: 20220927, end: 20220928
  10. ETOPOSIDE [Suspect]
     Active Substance: ETOPOSIDE
     Indication: Chemotherapy
  11. DACTINOMYCIN [Suspect]
     Active Substance: DACTINOMYCIN
     Indication: Malignant hydatidiform mole
     Dosage: 0.5 MG, QD, DILUTED WITH 90 ML SODIUM CHLOIDE
     Route: 042
     Dates: start: 20220927, end: 20220928
  12. DACTINOMYCIN [Suspect]
     Active Substance: DACTINOMYCIN
     Indication: Chemotherapy
  13. METHOTREXATE [Suspect]
     Active Substance: METHOTREXATE
     Indication: Malignant hydatidiform mole
     Dosage: 0.3 G, QD, DILUTED WITH 500 ML OF 0.9% SODIUM CHLORIDE
     Route: 041
     Dates: start: 20220927, end: 20220927
  14. METHOTREXATE [Suspect]
     Active Substance: METHOTREXATE
     Indication: Chemotherapy
     Dosage: 0.15 G, QD DILUTED WITH 90 ML SODIUM CHLORIDE INJECTION
     Route: 042
     Dates: start: 20220927, end: 20220927
  15. VINCRISTINE SULFATE [Suspect]
     Active Substance: VINCRISTINE SULFATE
     Indication: Malignant hydatidiform mole
     Dosage: 1.5 MG, QD, DILUTED WITH 20 ML OF 0.9% SODIUM CHLORIDE
     Route: 042
     Dates: start: 20221004, end: 20221004
  16. VINCRISTINE SULFATE [Suspect]
     Active Substance: VINCRISTINE SULFATE
     Indication: Chemotherapy

REACTIONS (1)
  - Myelosuppression [Recovering/Resolving]

NARRATIVE: CASE EVENT DATE: 20221008
